FAERS Safety Report 9696692 (Version 1)
Quarter: 2013Q4

REPORT INFORMATION
  Report Type: Spontaneous
  Country: GB (occurrence: GB)
  Receive Date: 20131119
  Receipt Date: 20131119
  Transmission Date: 20140711
  Serious: Yes (Life-Threatening, Other)
  Sender: FDA-Public Use
  Company Number: PHHY2013GB130705

PATIENT
  Age: 68 Year
  Sex: Male

DRUGS (6)
  1. ALENDRONIC ACID [Suspect]
     Indication: OSTEOPOROSIS PROPHYLAXIS
     Dosage: 70 MG, UNK
     Route: 048
  2. PREDNISOLONE [Concomitant]
  3. METHOTREXATE [Concomitant]
  4. FOLIC ACID [Concomitant]
  5. ASPIRIN [Concomitant]
  6. ANTIHYPERTENSIVES [Concomitant]

REACTIONS (8)
  - Chemical burn of respiratory tract [Recovered/Resolved]
  - Choking [Unknown]
  - Dysphonia [Unknown]
  - Foreign body [Unknown]
  - Laryngeal ulceration [Recovering/Resolving]
  - Epiglottis ulcer [Unknown]
  - Epiglottitis [Unknown]
  - Laryngeal oedema [Unknown]
